FAERS Safety Report 7988696-9 (Version None)
Quarter: 2011Q4

REPORT INFORMATION
  Report Type: 
  Country: None (occurrence: None)
  Receive Date: 20111218
  Receipt Date: 20111206
  Transmission Date: 20120403
  Serious: No
  Sender: FDA-Public Use
  Company Number: GB-ELI_LILLY_AND_COMPANY-GB201112002019

PATIENT
  Sex: Female

DRUGS (2)
  1. OLANZAPINE [Suspect]
     Dosage: 10 MG, QD
  2. OLANZAPINE [Suspect]
     Indication: CYCLOTHYMIC DISORDER
     Dosage: UNK, QD

REACTIONS (2)
  - NEUTROPHILIA [None]
  - NEUTROPENIA [None]
